FAERS Safety Report 8809495 (Version 2)
Quarter: 2015Q2

REPORT INFORMATION
  Report Type: Report from Study
  Country: US (occurrence: US)
  Receive Date: 20120926
  Receipt Date: 20150625
  Transmission Date: 20150821
  Serious: Yes (Death, Hospitalization, Other)
  Sender: FDA-Public Use
  Company Number: US-ROCHE-1123179

PATIENT
  Age: 34 Year
  Sex: Female
  Weight: 60 kg

DRUGS (43)
  1. ABRAXANE [Suspect]
     Active Substance: PACLITAXEL
     Indication: PRODUCT USED FOR UNKNOWN INDICATION
     Route: 042
  2. FASLODEX [Concomitant]
     Active Substance: FULVESTRANT
     Route: 042
  3. ALOXI [Concomitant]
     Active Substance: PALONOSETRON HYDROCHLORIDE
     Route: 042
  4. VINORELBINE [Concomitant]
     Active Substance: VINORELBINE\VINORELBINE TARTRATE
     Route: 042
  5. AUGMENTIN [Concomitant]
     Active Substance: AMOXICILLIN\CLAVULANATE POTASSIUM
     Route: 065
  6. KEPPRA [Concomitant]
     Active Substance: LEVETIRACETAM
  7. AMBIEN [Concomitant]
     Active Substance: ZOLPIDEM TARTRATE
  8. TAXOTERE [Concomitant]
     Active Substance: DOCETAXEL
  9. DECADRON [Concomitant]
     Active Substance: DEXAMETHASONE
     Route: 042
  10. ZOMETA [Concomitant]
     Active Substance: ZOLEDRONIC ACID
     Route: 042
  11. EPOGEN [Concomitant]
     Active Substance: ERYTHROPOIETIN
     Route: 065
  12. DOCETAXEL. [Concomitant]
     Active Substance: DOCETAXEL
     Route: 042
  13. DILAUDID [Concomitant]
     Active Substance: HYDROMORPHONE HYDROCHLORIDE
     Route: 065
  14. METHOTREXATE [Concomitant]
     Active Substance: METHOTREXATE
  15. DEXAMETHASONE. [Concomitant]
     Active Substance: DEXAMETHASONE
  16. ATARAX [Concomitant]
     Active Substance: HYDROXYZINE\HYDROXYZINE HYDROCHLORIDE
     Route: 065
  17. AVASTIN [Suspect]
     Active Substance: BEVACIZUMAB
     Route: 042
  18. COMPAZINE [Concomitant]
     Active Substance: PROCHLORPERAZINE MALEATE
  19. AVASTIN [Suspect]
     Active Substance: BEVACIZUMAB
     Indication: BREAST CANCER FEMALE
     Route: 042
     Dates: start: 20050904
  20. AVASTIN [Suspect]
     Active Substance: BEVACIZUMAB
     Route: 042
  21. LASIX [Concomitant]
     Active Substance: FUROSEMIDE
  22. NEULASTA [Concomitant]
     Active Substance: PEGFILGRASTIM
     Route: 058
  23. TAMOXIFEN [Concomitant]
     Active Substance: TAMOXIFEN
  24. ZOLOFT [Concomitant]
     Active Substance: SERTRALINE HYDROCHLORIDE
     Route: 042
  25. CARBOPLATIN. [Concomitant]
     Active Substance: CARBOPLATIN
  26. ZOSYN [Concomitant]
     Active Substance: PIPERACILLIN SODIUM\TAZOBACTAM SODIUM
     Route: 065
  27. SYNTHROID [Concomitant]
     Active Substance: LEVOTHYROXINE SODIUM
     Route: 065
  28. VITAMIN E [Concomitant]
     Active Substance: .ALPHA.-TOCOPHEROL
  29. ARANESP [Concomitant]
     Active Substance: DARBEPOETIN ALFA
     Route: 058
  30. ALBUTEROL. [Concomitant]
     Active Substance: ALBUTEROL
  31. DAPTOMYCIN. [Concomitant]
     Active Substance: DAPTOMYCIN
  32. ANCEF (UNITED STATES) [Concomitant]
  33. XELODA [Suspect]
     Active Substance: CAPECITABINE
     Indication: BREAST CANCER FEMALE
     Route: 065
  34. KYTRIL [Concomitant]
     Active Substance: GRANISETRON HYDROCHLORIDE
     Route: 042
  35. GEMZAR [Concomitant]
     Active Substance: GEMCITABINE HYDROCHLORIDE
  36. KENALOG [Concomitant]
     Active Substance: TRIAMCINOLONE ACETONIDE
     Route: 042
  37. BENADRYL [Concomitant]
     Active Substance: DIPHENHYDRAMINE HYDROCHLORIDE
     Route: 042
  38. DILANTIN [Concomitant]
     Active Substance: PHENYTOIN
     Route: 042
  39. VANCOMYCIN [Concomitant]
     Active Substance: VANCOMYCIN
  40. ATIVAN [Concomitant]
     Active Substance: LORAZEPAM
  41. LEXAPRO [Concomitant]
     Active Substance: ESCITALOPRAM OXALATE
  42. TESSALON [Concomitant]
     Active Substance: BENZONATATE
  43. VITAMIN B6 [Concomitant]
     Active Substance: PYRIDOXINE HYDROCHLORIDE

REACTIONS (47)
  - Injection site cellulitis [Unknown]
  - Thrombocytopenia [Unknown]
  - Vaginal haemorrhage [Recovered/Resolved]
  - Abdominal discomfort [Unknown]
  - Laceration [Unknown]
  - Abdominal distension [Unknown]
  - Oedema [Unknown]
  - Platelet count decreased [Unknown]
  - Pain [Unknown]
  - Injection site erythema [Unknown]
  - Nausea [Unknown]
  - Fatigue [Unknown]
  - Leukopenia [Unknown]
  - Peripheral sensory neuropathy [Unknown]
  - Incontinence [Unknown]
  - Rash [Unknown]
  - Venous thrombosis [Recovered/Resolved]
  - Death [Fatal]
  - Lymphadenopathy [Unknown]
  - Paraesthesia [Unknown]
  - Alopecia [Unknown]
  - Constipation [Unknown]
  - Chills [Unknown]
  - Skin exfoliation [Unknown]
  - Product use issue [Unknown]
  - Bacteraemia [Unknown]
  - Pruritus [Unknown]
  - Palmar-plantar erythrodysaesthesia syndrome [Unknown]
  - Cough [Unknown]
  - Wheezing [Unknown]
  - Epistaxis [Recovered/Resolved]
  - Contusion [Unknown]
  - Decreased appetite [Unknown]
  - Asthenia [Unknown]
  - Pain in extremity [Unknown]
  - Status epilepticus [Unknown]
  - Vomiting [Unknown]
  - Mood altered [Unknown]
  - Rash erythematous [Unknown]
  - Disease progression [Unknown]
  - Chromatopsia [Unknown]
  - Rash macular [Unknown]
  - Pyrexia [Unknown]
  - Dyspnoea [Unknown]
  - Headache [Unknown]
  - Musculoskeletal chest pain [Unknown]
  - Hot flush [Unknown]

NARRATIVE: CASE EVENT DATE: 20061229
